FAERS Safety Report 9949886 (Version 1)
Quarter: 2014Q1

REPORT INFORMATION
  Report Type: Report from Study
  Country: US (occurrence: US)
  Receive Date: 20140304
  Receipt Date: 20140304
  Transmission Date: 20141002
  Serious: No
  Sender: FDA-Public Use
  Company Number: US-ABBVIE-13P-163-1067105-00

PATIENT
  Age: 20 Year
  Sex: Female
  Weight: 56.3 kg

DRUGS (2)
  1. HUMIRA [Suspect]
     Indication: CROHN^S DISEASE
     Dosage: ONE-TIME DOSE
     Route: 058
     Dates: start: 20130225, end: 20130225
  2. HUMIRA [Suspect]
     Dosage: ONE-TIME DOSE
     Route: 058
     Dates: start: 20130313, end: 20130313

REACTIONS (1)
  - Acne [Not Recovered/Not Resolved]
